FAERS Safety Report 9613532 (Version 3)
Quarter: 2014Q2

REPORT INFORMATION
  Report Type: Spontaneous
  Country: US (occurrence: US)
  Receive Date: 20131010
  Receipt Date: 20140606
  Transmission Date: 20141212
  Serious: Yes (Hospitalization)
  Sender: FDA-Public Use
  Company Number: US-B.I. PHARMACEUTICALS,INC./RIDGEFIELD-2013-BI-31361BP

PATIENT
  Age: 65 Year
  Sex: Female
  Weight: 92.08 kg

DRUGS (14)
  1. PRADAXA [Suspect]
     Indication: ATRIAL FIBRILLATION
     Dosage: 300 MG
     Route: 048
     Dates: start: 20110113, end: 20120312
  2. METFORMIN [Concomitant]
     Indication: DIABETES MELLITUS
     Dosage: 1000 MG
     Route: 048
     Dates: start: 2008
  3. FLUOXETINE [Concomitant]
     Dosage: 10 MG
     Route: 048
  4. POTASSIUM CHLORIDE [Concomitant]
     Dosage: 20 MEQ
     Route: 065
  5. TUMS [Concomitant]
     Route: 065
  6. MELATONIN [Concomitant]
     Route: 065
  7. TYLENOL [Concomitant]
     Route: 065
  8. OPCON EYE DROPS [Concomitant]
     Route: 031
  9. MULTIVITAMIN [Concomitant]
     Route: 065
  10. VITAMIN D/CALCIUM [Concomitant]
     Route: 065
  11. METOPROLOL [Concomitant]
     Dosage: 25 MG
     Route: 048
     Dates: start: 2011
  12. FUROSEMIDE [Concomitant]
     Dosage: 20 MG
     Route: 048
  13. LISINOPRIL [Concomitant]
     Dosage: 10 MG
     Route: 048
     Dates: start: 2011, end: 201203
  14. SIMVASTATIN [Concomitant]
     Dosage: 10 MG
     Route: 048

REACTIONS (3)
  - Gastrointestinal haemorrhage [Unknown]
  - Haemorrhagic anaemia [Unknown]
  - Coagulopathy [Unknown]
